FAERS Safety Report 6480311 (Version 1)
Quarter: 2020Q3

REPORT INFORMATION
  Report Type: Report from Study
  Country: DE (occurrence: DE)
  Receive Date: 20071204
  Receipt Date: 20071204
  Transmission Date: 20201104
  Serious: Yes (Life-Threatening)
  Sender: FDA-Public Use
  Company Number: DE-ROCHE-533709

PATIENT
  Sex: Female
  Weight: 55 kg

DRUGS (1)
  1. IBANDRONIC ACID. [Suspect]
     Active Substance: IBANDRONIC ACID
     Indication: OSTEOPOROSIS
     Route: 065
     Dates: start: 20061129, end: 20071012

REACTIONS (1)
  - Gastric haemorrhage [Not Recovered/Not Resolved]
